FAERS Safety Report 22530292 (Version 1)
Quarter: 2023Q2

REPORT INFORMATION
  Report Type: Spontaneous
  Country: KR (occurrence: KR)
  Receive Date: 20230607
  Receipt Date: 20230607
  Transmission Date: 20230721
  Serious: Yes (Hospitalization)
  Sender: FDA-Public Use
  Company Number: KR-ORGANON-O2305KOR003095

PATIENT
  Age: 80 Year
  Sex: Male
  Weight: 70.1 kg

DRUGS (12)
  1. COZAAR [Suspect]
     Active Substance: LOSARTAN POTASSIUM
     Indication: Hypertension
     Dosage: 50 MILLIGRAM, QD
     Route: 048
     Dates: start: 20201105, end: 20201116
  2. OXALIPLATIN [Suspect]
     Active Substance: OXALIPLATIN
     Indication: Colon cancer
     Dosage: 85 MILLIGRAMS PER SQUARE METER BIW
     Route: 042
     Dates: start: 20200723
  3. FLUOROURACIL [Suspect]
     Active Substance: FLUOROURACIL
     Indication: Colon cancer
     Dosage: 400 MILLIGRAMS PER SQUARE METER, BIW
     Route: 042
     Dates: start: 20200723
  4. FLUOROURACIL [Suspect]
     Active Substance: FLUOROURACIL
     Dosage: 400 MILLIGRAMS PER SQUARE METER, BIW
     Route: 040
     Dates: start: 20200723
  5. LEUCOVORIN CALCIUM [Suspect]
     Active Substance: LEUCOVORIN CALCIUM
     Indication: Colon cancer
     Dosage: 200 MILLIGRAMS PER SQUARE METER, BIW
     Route: 042
     Dates: start: 20200723
  6. MOXIFLOXACIN HYDROCHLORIDE [Concomitant]
     Active Substance: MOXIFLOXACIN HYDROCHLORIDE
     Indication: Prophylaxis
     Dosage: 400 MILLIGRAM, QD
     Route: 042
     Dates: start: 20201105, end: 20201116
  7. FAMOTIDINE [Concomitant]
     Active Substance: FAMOTIDINE
     Indication: Pain
     Dosage: 20 MILLIGRAM, Q12H
     Route: 042
     Dates: start: 20201105, end: 20201116
  8. METOCLOPRAMIDE HYDROCHLORIDE [Concomitant]
     Active Substance: METOCLOPRAMIDE HYDROCHLORIDE
     Indication: Nausea
     Dosage: 20 MILLIGRAM, QD
     Route: 042
     Dates: start: 20201105, end: 20201116
  9. MEGESTROL ACETATE [Concomitant]
     Active Substance: MEGESTROL ACETATE
     Indication: Decreased appetite
     Dosage: 20 MILLILITER, QD
     Dates: start: 20201105, end: 20201116
  10. HYDROCHLOROTHIAZIDE [Concomitant]
     Active Substance: HYDROCHLOROTHIAZIDE
     Indication: Hypertension
     Dosage: 12.5 MILLIGRAM, QD
     Dates: start: 20201105, end: 20201116
  11. ACETAMINOPHEN [Concomitant]
     Active Substance: ACETAMINOPHEN
     Indication: Pyrexia
     Dosage: 1 GRAM, QD
     Route: 042
     Dates: start: 20201106, end: 20201116
  12. GABAPENTIN [Concomitant]
     Active Substance: GABAPENTIN
     Indication: Neuropathy peripheral
     Dosage: 300 MILLIGRAM, QD
     Route: 048
     Dates: start: 20201106, end: 20201116

REACTIONS (2)
  - Neutrophil count decreased [Recovered/Resolved]
  - Embolism [Recovered/Resolved]

NARRATIVE: CASE EVENT DATE: 20201105
